FAERS Safety Report 6680383-2 (Version None)
Quarter: 2010Q2

REPORT INFORMATION
  Report Type: 
  Country: None (occurrence: None)
  Receive Date: 20100412
  Receipt Date: 20100304
  Transmission Date: 20101027
  Serious: Yes (Hospitalization)
  Sender: FDA-Public Use
  Company Number: SPV1-2009-02565

PATIENT
  Age: 4 Year
  Sex: Male
  Weight: 26.8 kg

DRUGS (4)
  1. ELAPRASE        (IDURSULFASE) CONCENTRATE FOR SOLUTION [Suspect]
     Indication: MUCOPOLYSACCHARIDOSIS II
     Dosage: 0.5 MG/KG, 1X/WEEK, IV DRIP
     Route: 041
     Dates: start: 20071006
  2. LEVALBUTEROL HYDROCHLORIDE [Concomitant]
  3. LIDOCAINE W/PRILOCAINE (LIDOCAINE W/PRILOCAINE) [Concomitant]
  4. MOMETASONE FUROATE [Concomitant]

REACTIONS (1)
  - HYPOKALAEMIA [None]
